FAERS Safety Report 18836379 (Version 1)
Quarter: 2021Q1

REPORT INFORMATION
  Report Type: Report from Study
  Country: IL (occurrence: IL)
  Receive Date: 20210203
  Receipt Date: 20210203
  Transmission Date: 20210419
  Serious: Yes (Congenital Anomaly)
  Sender: FDA-Public Use
  Company Number: IL-GLAXOSMITHKLINE-IL2021GSK026700

PATIENT
  Sex: Male
  Weight: 2.15 kg

DRUGS (5)
  1. ESTROGENS [Suspect]
     Active Substance: ESTROGENS
     Indication: ENDOMETRIOSIS
     Dosage: 6 MG, 1D
     Route: 064
  2. PROGESTERONE. [Suspect]
     Active Substance: PROGESTERONE
     Indication: ENDOMETRIOSIS
     Dosage: 600 MG, 1D
     Route: 064
  3. LAMOTRIGINE. [Suspect]
     Active Substance: LAMOTRIGINE
     Indication: DEPRESSION
     Dosage: 100 MG, 1D
     Route: 064
  4. VORTIOXETINE. [Suspect]
     Active Substance: VORTIOXETINE
     Indication: DEPRESSION
     Dosage: 10 MG, 1D
     Route: 064
  5. METOCLOPRAMIDE. [Suspect]
     Active Substance: METOCLOPRAMIDE
     Indication: HYPEREMESIS GRAVIDARUM
     Dosage: 10 MG, PRN
     Route: 064

REACTIONS (3)
  - Inguinal hernia [Unknown]
  - Premature baby [Unknown]
  - Foetal exposure during pregnancy [Unknown]
